FAERS Safety Report 12067156 (Version 2)
Quarter: 2016Q1

REPORT INFORMATION
  Report Type: Spontaneous
  Country: US (occurrence: US)
  Receive Date: 20160210
  Receipt Date: 20160316
  Transmission Date: 20160526
  Serious: No
  Sender: FDA-Public Use
  Company Number: US-JNJFOC-20151225471

PATIENT
  Sex: Female
  Weight: 74.84 kg

DRUGS (1)
  1. ITRACONAZOLE. [Suspect]
     Active Substance: ITRACONAZOLE
     Indication: COCCIDIOIDOMYCOSIS
     Route: 048
     Dates: start: 201511

REACTIONS (2)
  - Product colour issue [Unknown]
  - Medication error [Unknown]

NARRATIVE: CASE EVENT DATE: 2015
